FAERS Safety Report 5037608-9 (Version None)
Quarter: 2006Q2

REPORT INFORMATION
  Report Type: 
  Country: None (occurrence: None)
  Receive Date: 20060608
  Receipt Date: 20060210
  Transmission Date: 20061013
  Serious: Yes (Death)
  Sender: FDA-Public Use
  Company Number: ES-2006-002707

PATIENT
  Age: 61 Year
  Sex: Male
  Weight: 65 kg

DRUGS (1)
  1. QUADRAMET [Suspect]
     Indication: METASTATIC PAIN
     Dosage: INJECTION

REACTIONS (1)
  - CARDIO-RESPIRATORY ARREST [None]
